FAERS Safety Report 9458655 (Version 1)
Quarter: 2013Q3

REPORT INFORMATION
  Report Type: Spontaneous
  Country: US (occurrence: US)
  Receive Date: 20130814
  Receipt Date: 20130814
  Transmission Date: 20140515
  Serious: Yes (Other)
  Sender: FDA-Public Use
  Company Number: US-ASTRAZENECA-2013SE61465

PATIENT
  Age: 54 Year
  Sex: Male
  Weight: 93.9 kg

DRUGS (11)
  1. SEROQUEL IR [Suspect]
     Indication: BIPOLAR DISORDER
     Route: 048
     Dates: start: 201211
  2. CYMBALTA [Concomitant]
     Indication: DEPRESSION
     Route: 048
  3. VISTARIL [Concomitant]
     Indication: SLEEP DISORDER
     Route: 048
  4. LASIX [Concomitant]
     Indication: OEDEMA
     Route: 048
  5. LASIX [Concomitant]
     Indication: BLOOD PRESSURE ABNORMAL
     Route: 048
  6. POTASSIUM [Concomitant]
     Indication: BLOOD POTASSIUM ABNORMAL
     Dosage: 750MG X4 DAILY
     Route: 048
  7. FLOMAX [Concomitant]
     Indication: BLADDER DISORDER
     Route: 048
  8. CONCERTA [Concomitant]
     Indication: ATTENTION DEFICIT/HYPERACTIVITY DISORDER
     Route: 048
  9. LAMICTAL [Concomitant]
     Indication: BIPOLAR DISORDER
     Route: 048
  10. CIALIS [Concomitant]
     Indication: ERECTILE DYSFUNCTION
     Route: 048
  11. SIMVASTATIN [Concomitant]
     Indication: BLOOD CHOLESTEROL ABNORMAL
     Route: 048

REACTIONS (6)
  - Nephrolithiasis [Unknown]
  - Insomnia [Recovered/Resolved]
  - Weight decreased [Unknown]
  - Restlessness [Unknown]
  - Hypokinesia [Unknown]
  - Dyskinesia [Unknown]
